FAERS Safety Report 10912352 (Version 1)
Quarter: 2015Q1

REPORT INFORMATION
  Report Type: Spontaneous
  Country: US (occurrence: US)
  Receive Date: 20150313
  Receipt Date: 20150313
  Transmission Date: 20150721
  Serious: Yes (Other)
  Sender: FDA-Public Use
  Company Number: US-PFIZER INC-2015088404

PATIENT
  Age: 6 Year
  Sex: Male

DRUGS (1)
  1. VIAGRA [Suspect]
     Active Substance: SILDENAFIL CITRATE
     Dosage: ^600 MG^, SINGLE

REACTIONS (2)
  - Accidental exposure to product by child [Recovered/Resolved with Sequelae]
  - Erection increased [Recovered/Resolved with Sequelae]

NARRATIVE: CASE EVENT DATE: 201503
